FAERS Safety Report 7362988-9 (Version None)
Quarter: 2011Q1

REPORT INFORMATION
  Report Type: 
  Country: None (occurrence: None)
  Receive Date: 20110321
  Receipt Date: 20110315
  Transmission Date: 20110831
  Serious: No
  Sender: FDA-Public Use
  Company Number: US-PFIZER INC-2011057431

PATIENT
  Sex: Female
  Weight: 91 kg

DRUGS (3)
  1. XALATAN [Suspect]
     Indication: GLAUCOMA
     Dosage: ONE DROP, 1X/DAY, IN EACH EYE
     Route: 047
  2. DORZOLAMIDE [Concomitant]
     Dosage: UNK
  3. XALATAN [Suspect]
     Indication: INTRAOCULAR PRESSURE INCREASED

REACTIONS (1)
  - MADAROSIS [None]
